FAERS Safety Report 9822797 (Version 2)
Quarter: 2014Q1

REPORT INFORMATION
  Report Type: Report from Study
  Country: IT (occurrence: IT)
  Receive Date: 20140116
  Receipt Date: 20140206
  Transmission Date: 20141002
  Serious: Yes (Hospitalization)
  Sender: FDA-Public Use
  Company Number: IT-EXELIXIS-XL18414003883

PATIENT
  Age: 70 Year
  Sex: Male
  Weight: 103 kg

DRUGS (8)
  1. XL184 [Suspect]
     Indication: PROSTATE CANCER
     Dosage: 60 MG, QD
     Route: 048
     Dates: start: 20130926, end: 20131116
  2. XL184 [Suspect]
     Indication: PROSTATE CANCER
     Dosage: 5 MG, BID
     Route: 048
     Dates: start: 20130926, end: 20131125
  3. CO-EFFERALGAN [Concomitant]
  4. DUROGESIC [Concomitant]
  5. MYCOSTATIN [Concomitant]
  6. OLMESARTAN [Concomitant]
  7. ZOMETA [Concomitant]
  8. COLECALCIFEROL [Concomitant]

REACTIONS (3)
  - Anaemia [Recovered/Resolved]
  - Paraesthesia [Recovered/Resolved]
  - Oedema peripheral [Recovered/Resolved]
